FAERS Safety Report 24225622 (Version 1)
Quarter: 2024Q3

REPORT INFORMATION
  Report Type: Spontaneous
  Country: JP (occurrence: None)
  Receive Date: 20240820
  Receipt Date: 20240820
  Transmission Date: 20241017
  Serious: Yes (Hospitalization)
  Sender: ORION
  Company Number: JP-MLMSERVICE-20240807-PI155191-00285-1

PATIENT
  Age: 8 Decade
  Sex: Male

DRUGS (15)
  1. STALEVO [Interacting]
     Active Substance: CARBIDOPA\ENTACAPONE\LEVODOPA
     Indication: Product used for unknown indication
     Dosage: LEVODOPA 100 MG/DAY-ENTACAPONE 600 MG/DAY
  2. STALEVO [Interacting]
     Active Substance: CARBIDOPA\ENTACAPONE\LEVODOPA
     Dosage: DOSE INCREASED
  3. AMANTADINE [Interacting]
     Active Substance: AMANTADINE
     Indication: Parkinson^s disease
  4. AMLODIPINE [Interacting]
     Active Substance: AMLODIPINE BESYLATE
     Indication: Product used for unknown indication
  5. VONOPRAZAN [Interacting]
     Active Substance: VONOPRAZAN
     Indication: Product used for unknown indication
  6. MAGNESIUM OXIDE [Interacting]
     Active Substance: MAGNESIUM OXIDE
     Indication: Product used for unknown indication
  7. RISPERIDONE [Interacting]
     Active Substance: RISPERIDONE
     Indication: Product used for unknown indication
  8. SENNOSIDES [Interacting]
     Active Substance: SENNOSIDES
     Indication: Product used for unknown indication
  9. ELOBIXIBAT [Interacting]
     Active Substance: ELOBIXIBAT
     Indication: Product used for unknown indication
  10. LUBIPROSTONE [Interacting]
     Active Substance: LUBIPROSTONE
     Indication: Product used for unknown indication
  11. FENOFIBRATE [Interacting]
     Active Substance: FENOFIBRATE
     Indication: Product used for unknown indication
  12. ISTRADEFYLLINE [Interacting]
     Active Substance: ISTRADEFYLLINE
     Indication: Product used for unknown indication
  13. RASAGILINE [Interacting]
     Active Substance: RASAGILINE\RASAGILINE MESYLATE
     Indication: Product used for unknown indication
  14. DROXIDOPA [Interacting]
     Active Substance: DROXIDOPA
     Indication: Orthostatic hypotension
  15. MOSAPRIDE [Interacting]
     Active Substance: MOSAPRIDE
     Indication: Product used for unknown indication

REACTIONS (7)
  - Drug interaction [Recovering/Resolving]
  - Decreased appetite [Recovering/Resolving]
  - Cerebral atrophy [Recovering/Resolving]
  - Epilepsy [Recovered/Resolved]
  - Delirium [Recovered/Resolved]
  - Renal impairment [Recovering/Resolving]
  - Generalised tonic-clonic seizure [Recovered/Resolved]
